FAERS Safety Report 17191722 (Version 1)
Quarter: 2019Q4

REPORT INFORMATION
  Report Type: Spontaneous
  Country: CO (occurrence: CO)
  Receive Date: 20191223
  Receipt Date: 20191223
  Transmission Date: 20200122
  Serious: Yes (Other)
  Sender: FDA-Public Use
  Company Number: CO-PFIZER INC-2019547770

PATIENT
  Age: 53 Year
  Sex: Female

DRUGS (3)
  1. REAMPLA [Suspect]
     Active Substance: PALBOCICLIB
     Indication: BREAST CANCER METASTATIC
     Dosage: 125 MG, UNK
     Dates: start: 2018
  2. REAMPLA [Suspect]
     Active Substance: PALBOCICLIB
     Dosage: 100 MG, UNK
     Dates: start: 201910
  3. TRAMADOL. [Suspect]
     Active Substance: TRAMADOL

REACTIONS (12)
  - Oral mucosal blistering [Unknown]
  - Nodule [Unknown]
  - Pruritus [Unknown]
  - Haemorrhage [Unknown]
  - Dyspnoea [Unknown]
  - Neoplasm progression [Unknown]
  - Rectal haemorrhage [Unknown]
  - Skin infection [Unknown]
  - Blood urine present [Unknown]
  - Malaise [Unknown]
  - Blister infected [Unknown]
  - Genital discomfort [Unknown]

NARRATIVE: CASE EVENT DATE: 2019
